FAERS Safety Report 25485048 (Version 2)
Quarter: 2025Q3

REPORT INFORMATION
  Report Type: Spontaneous
  Country: EU (occurrence: EU)
  Receive Date: 20250626
  Receipt Date: 20250709
  Transmission Date: 20251021
  Serious: Yes (Other)
  Sender: RANBAXY
  Company Number: EU-SUN PHARMACEUTICAL INDUSTRIES LTD-2025R1-513674

PATIENT
  Age: 16 Year
  Sex: Female

DRUGS (2)
  1. THEOPHYLLINE [Suspect]
     Active Substance: THEOPHYLLINE
     Indication: Dyspnoea
     Dosage: 200 MILLIGRAM, BID
     Route: 065
  2. THEOPHYLLINE [Suspect]
     Active Substance: THEOPHYLLINE
     Dosage: 300 MILLIGRAM, BID
     Route: 065

REACTIONS (2)
  - Tremor [Recovered/Resolved]
  - Sleep disorder [Recovered/Resolved]
